FAERS Safety Report 6237229-6 (Version None)
Quarter: 2009Q2

REPORT INFORMATION
  Report Type: 
  Country: None (occurrence: None)
  Receive Date: 20090619
  Receipt Date: 20090615
  Transmission Date: 20091009
  Serious: Yes (Hospitalization)
  Sender: FDA-Public Use
  Company Number: DE-BRISTOL-MYERS SQUIBB COMPANY-14669972

PATIENT
  Age: 54 Year
  Sex: Male

DRUGS (3)
  1. CETUXIMAB [Suspect]
     Indication: NON-SMALL CELL LUNG CANCER
     Dosage: CETUXIMAB 2MG/ML FIRST INFUSION ON 26-MAY-2009 MOST RECENT INFUSION ON 02-JUN-2009
     Route: 042
     Dates: start: 20090526
  2. CARBOPLATIN [Suspect]
     Indication: NON-SMALL CELL LUNG CANCER
     Dosage: 1 DOSAGE FORM= AUC 5 FIRST AND MOST RECENT INFUSION ON 26-MAY-2009
     Route: 042
     Dates: start: 20090526
  3. GEMCITABINE [Suspect]
     Indication: NON-SMALL CELL LUNG CANCER
     Dosage: FIRST INFUSION ON 26-MAY-2009 MOST RECENT INFUSION ON 02-JUN-2009
     Route: 042
     Dates: start: 20090526

REACTIONS (2)
  - PANCYTOPENIA [None]
  - RASH [None]
